FAERS Safety Report 10254288 (Version 1)
Quarter: 2014Q2

REPORT INFORMATION
  Report Type: Spontaneous
  Country: US (occurrence: US)
  Receive Date: 20140624
  Receipt Date: 20140624
  Transmission Date: 20141212
  Serious: Yes (Other)
  Sender: FDA-Public Use
  Company Number: US-BEH-2014043241

PATIENT
  Sex: Female

DRUGS (1)
  1. HIZENTRA [Suspect]

REACTIONS (9)
  - Fungal infection [Unknown]
  - Respiratory muscle weakness [Unknown]
  - Autonomic nervous system imbalance [Unknown]
  - Gastrointestinal motility disorder [Unknown]
  - Sinusitis [Unknown]
  - Bronchitis [Unknown]
  - Tremor [Unknown]
  - Chills [Unknown]
  - Pyrexia [Unknown]
